FAERS Safety Report 4344794-2 (Version None)
Quarter: 2004Q2

REPORT INFORMATION
  Report Type: 
  Country: None (occurrence: None)
  Receive Date: 20040420
  Receipt Date: 20040408
  Transmission Date: 20050107
  Serious: Yes (Hospitalization)
  Sender: FDA-Public Use
  Company Number: US-JNJFOC-20040401718

PATIENT
  Age: 44 Year
  Sex: Male
  Weight: 99.7913 kg

DRUGS (12)
  1. INFLIXIMAB (INFLIXIMAB, RECOMBINANT) LYPHOLIZED POWDER [Suspect]
     Indication: RHEUMATOID ARTHRITIS
     Dates: start: 20001130
  2. ACCUPRIL [Concomitant]
  3. AMITRIPTYLINE HCL [Concomitant]
  4. METHOCARBAMOL [Concomitant]
  5. MIACALCIN (CALCITONIN, SALMON( SPRAY [Concomitant]
  6. MS CONTIN [Concomitant]
  7. PAXIL [Concomitant]
  8. PLAVIX [Concomitant]
  9. PREDNISONE [Concomitant]
  10. PRILOSEC [Concomitant]
  11. TOPROL (METOPROLOL SUCCINATE) [Concomitant]
  12. QUESTRAN [Concomitant]

REACTIONS (2)
  - GASTRIC ULCER [None]
  - SMALL INTESTINAL OBSTRUCTION [None]
